FAERS Safety Report 16979063 (Version 1)
Quarter: 2019Q4

REPORT INFORMATION
  Report Type: Report from Study
  Country: CA (occurrence: CA)
  Receive Date: 20191031
  Receipt Date: 20191031
  Transmission Date: 20200122
  Serious: Yes (Other)
  Sender: FDA-Public Use
  Company Number: PHHY2017CA079081

PATIENT
  Sex: Female

DRUGS (7)
  1. JADENU [Suspect]
     Active Substance: DEFERASIROX
     Indication: THALASSAEMIA
     Dosage: 1080 MG, QD
     Route: 048
     Dates: start: 201707, end: 201801
  2. EXJADE [Suspect]
     Active Substance: DEFERASIROX
     Dosage: 250 MG, QD
     Route: 048
  3. EXJADE [Suspect]
     Active Substance: DEFERASIROX
     Indication: THALASSAEMIA
     Dosage: 375 MG, QD
     Route: 048
     Dates: start: 20120621
  4. EXJADE [Suspect]
     Active Substance: DEFERASIROX
     Dosage: 625 MG, QD
     Route: 048
     Dates: start: 201906
  5. EXJADE [Suspect]
     Active Substance: DEFERASIROX
     Dosage: 500 MG, QD
     Route: 048
  6. EXJADE [Suspect]
     Active Substance: DEFERASIROX
     Dosage: 500 MG, QD
     Route: 048
  7. EXJADE [Suspect]
     Active Substance: DEFERASIROX
     Dosage: 650 MG, QD
     Route: 048
     Dates: start: 20140621

REACTIONS (12)
  - Hypophosphataemia [Recovered/Resolved]
  - Blood iron increased [Unknown]
  - Drug ineffective [Unknown]
  - Urticaria [Recovered/Resolved]
  - Glucose urine present [Recovered/Resolved]
  - Pyrexia [Recovered/Resolved]
  - Diarrhoea [Recovered/Resolved]
  - Abdominal pain [Unknown]
  - Drug intolerance [Unknown]
  - Fanconi syndrome [Recovered/Resolved]
  - Serum ferritin increased [Unknown]
  - Serum ferritin decreased [Unknown]
